FAERS Safety Report 9791709 (Version 1)
Quarter: 2014Q1

REPORT INFORMATION
  Report Type: Report from Study
  Country: CN (occurrence: CN)
  Receive Date: 20140102
  Receipt Date: 20140102
  Transmission Date: 20141002
  Serious: Yes (Other)
  Sender: FDA-Public Use
  Company Number: CN-ROCHE-1327889

PATIENT
  Age: 55 Year
  Sex: Female
  Weight: 61.5 kg

DRUGS (4)
  1. CELLCEPT [Suspect]
     Indication: RENAL TRANSPLANT
     Dosage: PER DAY
     Route: 048
     Dates: start: 20050113
  2. CELLCEPT [Suspect]
     Dosage: 1.25G PER DAY
     Route: 048
  3. TACROLIMUS [Concomitant]
     Indication: RENAL TRANSPLANT
     Dosage: 2MG PER DAY
     Route: 048
     Dates: start: 20050113
  4. DILTIAZEM HYDROCHLORIDE [Concomitant]
     Indication: RENAL TRANSPLANT
     Dosage: 2 DF PER DAY
     Route: 065
     Dates: start: 20050113

REACTIONS (2)
  - Cardiac disorder [Unknown]
  - Ureteral neoplasm [Recovering/Resolving]
